FAERS Safety Report 5658009-6 (Version None)
Quarter: 2008Q1

REPORT INFORMATION
  Report Type: 
  Country: None (occurrence: None)
  Receive Date: 20080306
  Receipt Date: 20080221
  Transmission Date: 20080703
  Serious: Yes (Hospitalization)
  Sender: FDA-Public Use
  Company Number: 2008PV034328

PATIENT
  Age: 67 Year
  Sex: Male

DRUGS (15)
  1. SYMLINPEN (PRAMLINTIDE ACETATE) PEN-INJECTOR (1.0 MG/ML) [Suspect]
     Indication: TYPE 2 DIABETES MELLITUS
     Dosage: SC
     Route: 058
     Dates: start: 20080122
  2. SYMLIN [Suspect]
     Indication: TYPE 2 DIABETES MELLITUS
     Dosage: SC
     Route: 058
     Dates: start: 20060910, end: 20080122
  3. HUMALOG [Concomitant]
  4. LANTUS [Concomitant]
  5. NIASPAN [Concomitant]
  6. ALTACE [Concomitant]
  7. TOPROL-XL [Concomitant]
  8. LIPITOR [Concomitant]
  9. AMANTADINE HCL [Concomitant]
  10. SINEMET CR [Concomitant]
  11. NEUPRO [Concomitant]
  12. ACETYLSALICYLIC ACID [Concomitant]
  13. ANDROGEL [Concomitant]
  14. FISH OIL [Concomitant]
  15. VITAMIN CAP [Concomitant]

REACTIONS (22)
  - BACK PAIN [None]
  - BACTERAEMIA [None]
  - BLISTER [None]
  - CONSTIPATION [None]
  - DIZZINESS [None]
  - DYSPEPSIA [None]
  - FALL [None]
  - FATIGUE [None]
  - HAEMATEMESIS [None]
  - HEART RATE INCREASED [None]
  - HYPOTENSION [None]
  - INFLUENZA [None]
  - LOCALISED INFECTION [None]
  - NAUSEA [None]
  - OEDEMA PERIPHERAL [None]
  - RENAL IMPAIRMENT [None]
  - RESPIRATORY RATE INCREASED [None]
  - SEPSIS [None]
  - SOMNOLENCE [None]
  - STAPHYLOCOCCAL INFECTION [None]
  - THROMBOCYTOPENIA [None]
  - VOMITING [None]
